FAERS Safety Report 20992320 (Version 2)
Quarter: 2022Q3

REPORT INFORMATION
  Report Type: Spontaneous
  Country: US (occurrence: None)
  Receive Date: 20220622
  Receipt Date: 20220805
  Transmission Date: 20221027
  Serious: No
  Sender: FDA-Public Use
  Company Number: 2022A224748

PATIENT
  Age: 26090 Day
  Sex: Male
  Weight: 95.7 kg

DRUGS (1)
  1. SYMBICORT [Suspect]
     Active Substance: BUDESONIDE\FORMOTEROL FUMARATE DIHYDRATE
     Indication: Asthma
     Dosage: 160MCG/4.5MCG SYMBICORT INHALER 2 PUFFS TWICE DAILY
     Route: 055

REACTIONS (4)
  - Asthma [Unknown]
  - Wheezing [Unknown]
  - Hypersensitivity [Unknown]
  - Device malfunction [Unknown]

NARRATIVE: CASE EVENT DATE: 20220615
